FAERS Safety Report 25911517 (Version 1)
Quarter: 2025Q4

REPORT INFORMATION
  Report Type: Spontaneous
  Country: CA (occurrence: CA)
  Receive Date: 20251013
  Receipt Date: 20251013
  Transmission Date: 20260117
  Serious: Yes (Other)
  Sender: CELLTRION
  Company Number: CA-CELLTRION INC.-2025CA036298

PATIENT

DRUGS (4)
  1. INFLIXIMAB [Suspect]
     Active Substance: INFLIXIMAB
     Indication: Colitis microscopic
     Dosage: 300.0 MILLIGRAM
     Route: 042
  2. INFLIXIMAB [Suspect]
     Active Substance: INFLIXIMAB
     Dosage: 300.0 MILLIGRAM
     Route: 042
  3. INFLIXIMAB [Suspect]
     Active Substance: INFLIXIMAB
     Dosage: 300.0 MILLIGRAM
     Route: 042
  4. INFLIXIMAB [Suspect]
     Active Substance: INFLIXIMAB
     Dosage: 300.0 MILLIGRAM
     Route: 042

REACTIONS (7)
  - Condition aggravated [Recovering/Resolving]
  - Hernia [Recovering/Resolving]
  - Sleep disorder due to a general medical condition [Recovering/Resolving]
  - Weight increased [Recovering/Resolving]
  - Inappropriate schedule of product administration [Recovering/Resolving]
  - Off label use [Recovering/Resolving]
  - Intentional product use issue [Unknown]
